FAERS Safety Report 20024611 (Version 1)
Quarter: 2021Q4

REPORT INFORMATION
  Report Type: Spontaneous
  Country: US (occurrence: US)
  Receive Date: 20211102
  Receipt Date: 20211102
  Transmission Date: 20220304
  Serious: Yes (Other)
  Sender: FDA-Public Use
  Company Number: US-009507513-1904USA006765

PATIENT
  Sex: Female

DRUGS (4)
  1. ZOSTAVAX [Suspect]
     Active Substance: VARICELLA-ZOSTER VIRUS STRAIN OKA/MERCK LIVE ANTIGEN
     Indication: Prophylaxis
     Dosage: .65 MILLILITER
     Route: 065
     Dates: start: 20140715
  2. STERILE DILUENT (WATER) [Suspect]
     Active Substance: WATER
     Indication: Prophylaxis
     Dosage: UNK
     Dates: start: 20140715
  3. IMITREX [Concomitant]
     Active Substance: SUMATRIPTAN SUCCINATE
     Indication: Migraine
     Dosage: 25 MILLIGRAM
     Dates: start: 2010
  4. LIALDA [Concomitant]
     Active Substance: MESALAMINE
     Indication: Crohn^s disease
     Dosage: 1.2 MILLIGRAM
     Dates: start: 2009

REACTIONS (23)
  - Basal cell carcinoma [Unknown]
  - Nephrolithiasis [Unknown]
  - Pneumonia [Unknown]
  - Sinus node dysfunction [Unknown]
  - Cardiac pacemaker insertion [Unknown]
  - Actinic keratosis [Unknown]
  - Anxiety [Unknown]
  - Atrophic vulvovaginitis [Unknown]
  - Blood bilirubin increased [Unknown]
  - Breast cyst [Unknown]
  - Cholelithiasis [Unknown]
  - Coronary artery disease [Unknown]
  - Depression [Unknown]
  - Haematuria [Unknown]
  - Menopausal disorder [Unknown]
  - Neuralgia [Unknown]
  - Osteoporosis postmenopausal [Unknown]
  - Obesity [Unknown]
  - Vitamin B12 deficiency [Unknown]
  - Vitamin D deficiency [Unknown]
  - Herpes zoster [Unknown]
  - Arthralgia [Unknown]
  - Arthralgia [Unknown]

NARRATIVE: CASE EVENT DATE: 20150101
